FAERS Safety Report 12375791 (Version 3)
Quarter: 2016Q2

REPORT INFORMATION
  Report Type: Report from Study
  Country: CH (occurrence: CH)
  Receive Date: 20160517
  Receipt Date: 20160531
  Transmission Date: 20160815
  Serious: Yes (Hospitalization, Other)
  Sender: FDA-Public Use
  Company Number: CH-BAYER-2016-092831

PATIENT
  Age: 33 Year
  Sex: Female
  Weight: 52 kg

DRUGS (1)
  1. JAYDESS [Suspect]
     Active Substance: LEVONORGESTREL
     Dosage: 14 MCG/24HR, CONT
     Route: 015
     Dates: start: 20150929, end: 20160513

REACTIONS (3)
  - Device dislocation [Recovered/Resolved]
  - Cervical dysplasia [Recovering/Resolving]
  - Device use error [None]

NARRATIVE: CASE EVENT DATE: 20160502
